FAERS Safety Report 5820291-X (Version None)
Quarter: 2008Q3

REPORT INFORMATION
  Report Type: 
  Country: None (occurrence: None)
  Receive Date: 20080724
  Receipt Date: 20070601
  Transmission Date: 20090109
  Serious: No
  Sender: FDA-Public Use
  Company Number: A0653801A

PATIENT
  Sex: Female

DRUGS (7)
  1. AVANDIA [Suspect]
     Dosage: 4MG TWICE PER DAY
     Route: 048
     Dates: end: 20070501
  2. GLIPIZIDE [Concomitant]
  3. DIOVAN 80 [Concomitant]
  4. METOPROLOL TARTRATE [Concomitant]
  5. RANITIDINE HCL [Concomitant]
  6. ASPIRIN [Concomitant]
  7. TRAVATAN [Concomitant]

REACTIONS (2)
  - BLOOD GLUCOSE FLUCTUATION [None]
  - PHARMACEUTICAL PRODUCT COMPLAINT [None]
